FAERS Safety Report 11121615 (Version 1)
Quarter: 2015Q2

REPORT INFORMATION
  Report Type: Report from Study
  Country: KR (occurrence: KR)
  Receive Date: 20150519
  Receipt Date: 20150519
  Transmission Date: 20150821
  Serious: Yes (Death, Other)
  Sender: FDA-Public Use
  Company Number: KR-BAXTER-2015BAX026623

PATIENT
  Age: 1 Year
  Sex: Female
  Weight: 9.1 kg

DRUGS (1)
  1. DIANEAL PD-2 1.5% [Suspect]
     Active Substance: CALCIUM CHLORIDE\DEXTROSE\MAGNESIUM CHLORIDE\SODIUM CHLORIDE\SODIUM LACTATE
     Indication: CHRONIC KIDNEY DISEASE
     Route: 033
     Dates: start: 20141120, end: 20150515

REACTIONS (4)
  - Condition aggravated [Unknown]
  - Nasopharyngitis [Unknown]
  - Death [Fatal]
  - Respiration abnormal [Unknown]

NARRATIVE: CASE EVENT DATE: 20150515
